FAERS Safety Report 4946335-5 (Version None)
Quarter: 2006Q1

REPORT INFORMATION
  Report Type: 
  Country: None (occurrence: None)
  Receive Date: 20060317
  Receipt Date: 20060309
  Transmission Date: 20060701
  Serious: Yes (Hospitalization)
  Sender: FDA-Public Use
  Company Number: US-JNJFOC-20060302561

PATIENT
  Sex: Female
  Weight: 93.44 kg

DRUGS (8)
  1. TYLENOL W/ CODEINE [Suspect]
     Indication: DRUG USE FOR UNKNOWN INDICATION
     Route: 048
  2. ALEVE [Suspect]
     Indication: BACK PAIN
     Route: 048
  3. ZESTRIL [Concomitant]
     Route: 048
  4. CARDIZEM [Concomitant]
     Route: 048
  5. MICRONASE [Concomitant]
     Route: 048
  6. TENORETIC 100 [Concomitant]
     Route: 048
  7. TENORETIC 100 [Concomitant]
     Route: 048
  8. LIPITOR [Concomitant]

REACTIONS (4)
  - GASTRIC PERFORATION [None]
  - PAIN [None]
  - RECTAL HAEMORRHAGE [None]
  - VAGINAL HAEMORRHAGE [None]
